FAERS Safety Report 19449897 (Version 2)
Quarter: 2021Q3

REPORT INFORMATION
  Report Type: Spontaneous
  Country: RU (occurrence: RU)
  Receive Date: 20210622
  Receipt Date: 20210705
  Transmission Date: 20211014
  Serious: Yes (Other)
  Sender: FDA-Public Use
  Company Number: NVSC2021RU139166

PATIENT
  Age: 45 Year
  Sex: Female

DRUGS (3)
  1. BASILIXIMAB [Suspect]
     Active Substance: BASILIXIMAB
     Indication: IMMUNOSUPPRESSION
     Dosage: 20 MG
     Route: 065
     Dates: start: 20200128
  2. METHYLPREDNISOLONE. [Suspect]
     Active Substance: METHYLPREDNISOLONE
     Indication: PROPHYLAXIS AGAINST TRANSPLANT REJECTION
     Dosage: 10?15 MG/KG BEFORE THE AORTIC CLAMP WAS REMOVED
     Route: 065
  3. BASILIXIMAB [Suspect]
     Active Substance: BASILIXIMAB
     Indication: HEART TRANSPLANT
     Dosage: ON DAY 4 AFTER THE OPERATION
     Route: 065

REACTIONS (2)
  - Product use in unapproved indication [Unknown]
  - Heart transplant rejection [Recovered/Resolved]
